FAERS Safety Report 8846140 (Version 1)
Quarter: 2012Q4

REPORT INFORMATION
  Report Type: 
  Country: DE (occurrence: DE)
  Receive Date: 20121017
  Receipt Date: 20121017
  Transmission Date: 20130627
  Serious: Yes (Hospitalization, Other)
  Sender: FDA-Public Use
  Company Number: GXKR2012DE003200

PATIENT
  Age: 77 Year
  Sex: Male

DRUGS (1)
  1. AMOXIHEXAL [Suspect]
     Indication: BRONCHITIS
     Dosage: 1000 mg, UNK
     Route: 048
     Dates: start: 20120724, end: 20120730

REACTIONS (4)
  - Pneumonia [Not Recovered/Not Resolved]
  - Anaemia [Not Recovered/Not Resolved]
  - Drug ineffective [Not Recovered/Not Resolved]
  - Aplasia pure red cell [None]
